FAERS Safety Report 21286797 (Version 1)
Quarter: 2022Q3

REPORT INFORMATION
  Report Type: Spontaneous
  Country: FR (occurrence: FR)
  Receive Date: 20220902
  Receipt Date: 20220902
  Transmission Date: 20221027
  Serious: Yes (Hospitalization)
  Sender: FDA-Public Use
  Company Number: None

PATIENT

DRUGS (1)
  1. IVOSIDENIB [Suspect]
     Active Substance: IVOSIDENIB
     Indication: Myeloid leukaemia
     Dosage: 500 MG
     Route: 048
     Dates: start: 20201229

REACTIONS (2)
  - Sepsis [Not Recovered/Not Resolved]
  - Differentiation syndrome [Not Recovered/Not Resolved]

NARRATIVE: CASE EVENT DATE: 20210201
